FAERS Safety Report 8246837-2 (Version None)
Quarter: 2012Q1

REPORT INFORMATION
  Report Type: 
  Country: None (occurrence: None)
  Receive Date: 20120330
  Receipt Date: 20120326
  Transmission Date: 20120608
  Serious: Yes (Other)
  Sender: FDA-Public Use
  Company Number: US-PFIZER INC-2012077960

PATIENT
  Sex: Male

DRUGS (1)
  1. BENZATHINE PENICILLIN G [Suspect]
     Dosage: UNK

REACTIONS (2)
  - RASH [None]
  - ANAPHYLACTIC REACTION [None]
